FAERS Safety Report 11864474 (Version 1)
Quarter: 2015Q4

REPORT INFORMATION
  Report Type: Spontaneous
  Country: US (occurrence: US)
  Receive Date: 20151223
  Receipt Date: 20151223
  Transmission Date: 20160305
  Serious: No
  Sender: FDA-Public Use
  Company Number: US-TEVA-555477USA

PATIENT

DRUGS (1)
  1. ANTABUSE [Suspect]
     Active Substance: DISULFIRAM

REACTIONS (2)
  - Drug administration error [Unknown]
  - Malaise [Unknown]
